FAERS Safety Report 23205823 (Version 2)
Quarter: 2024Q1

REPORT INFORMATION
  Report Type: Report from Study
  Country: JP (occurrence: JP)
  Receive Date: 20231120
  Receipt Date: 20240201
  Transmission Date: 20240410
  Serious: Yes (Other)
  Sender: FDA-Public Use
  Company Number: JP-TAKEDA-2023TJP014961

PATIENT
  Age: 69 Year
  Sex: Female
  Weight: 43 kg

DRUGS (9)
  1. CABOMETYX [Suspect]
     Active Substance: CABOZANTINIB S-MALATE
     Indication: Renal cell carcinoma stage IV
     Dosage: 40 MG, QD
     Route: 048
     Dates: start: 20230314, end: 20230403
  2. CABOMETYX [Suspect]
     Active Substance: CABOZANTINIB S-MALATE
     Dosage: 20 MG, QD
     Route: 048
     Dates: start: 20230404, end: 20230411
  3. CABOMETYX [Suspect]
     Active Substance: CABOZANTINIB S-MALATE
     Dosage: 20 MG, QD
     Route: 048
     Dates: start: 20230426, end: 20230821
  4. Azunol [Concomitant]
     Indication: Renal cell carcinoma stage IV
     Dosage: UNK, GARGLE
     Route: 065
     Dates: start: 20230315
  5. UREA [Concomitant]
     Active Substance: UREA
     Indication: Renal cell carcinoma stage IV
     Dosage: UNK, CUTANEOUS SOLUTION
     Route: 065
     Dates: start: 20230321
  6. Rinderon [Concomitant]
     Indication: Renal cell carcinoma stage IV
     Dosage: UNK, OINTMENT
     Route: 065
     Dates: start: 20230321
  7. AMLODIPINE BESYLATE [Concomitant]
     Active Substance: AMLODIPINE BESYLATE
     Indication: Renal cell carcinoma stage IV
     Dosage: UNK
     Route: 065
     Dates: start: 20230404
  8. DEXAMETHASONE [Concomitant]
     Active Substance: DEXAMETHASONE
     Indication: Renal cell carcinoma stage IV
     Dosage: UNK, OROMUCOSAL OINTMENT
     Route: 065
     Dates: start: 20230404, end: 20230419
  9. HERBAL NOS [Concomitant]
     Active Substance: HERBALS
     Indication: Renal cell carcinoma stage IV
     Dosage: UNK
     Route: 065
     Dates: start: 20230623

REACTIONS (3)
  - Pulmonary toxicity [Recovering/Resolving]
  - Palmar-plantar erythrodysaesthesia syndrome [Recovered/Resolved]
  - Stomatitis [Recovered/Resolved]

NARRATIVE: CASE EVENT DATE: 20230404
